FAERS Safety Report 23341242 (Version 1)
Quarter: 2023Q4

REPORT INFORMATION
  Report Type: Spontaneous
  Country: US (occurrence: US)
  Receive Date: 20231227
  Receipt Date: 20231227
  Transmission Date: 20240110
  Serious: No
  Sender: FDA-Public Use
  Company Number: US-HETERO-HET2023US03712

PATIENT
  Sex: Male
  Weight: 68.027 kg

DRUGS (1)
  1. FINASTERIDE [Suspect]
     Active Substance: FINASTERIDE
     Indication: Bladder disorder
     Dosage: 5 MILLIGRAM, QD
     Route: 048

REACTIONS (2)
  - Dry mouth [Recovered/Resolved]
  - Product use in unapproved indication [Unknown]
